FAERS Safety Report 6965778-1 (Version None)
Quarter: 2010Q3

REPORT INFORMATION
  Report Type: 
  Country: None (occurrence: None)
  Receive Date: 20100903
  Receipt Date: 20100825
  Transmission Date: 20110219
  Serious: Yes (Life-Threatening)
  Sender: FDA-Public Use
  Company Number: JP-BRISTOL-MYERS SQUIBB COMPANY-15246770

PATIENT
  Age: 61 Year
  Sex: Male

DRUGS (4)
  1. ABILIFY [Suspect]
     Indication: BIPOLAR I DISORDER
     Dosage: 15MG: UNK DATE 24MG/D: UNK-10AUG10 15MG: 11AUG10-UNK
     Route: 048
     Dates: start: 20100506, end: 20100612
  2. ABILIFY [Suspect]
     Indication: DEPRESSION
     Dates: start: 20100804, end: 20100811
  3. LULLAN [Suspect]
     Indication: DEPRESSION
     Route: 048
     Dates: start: 20100622, end: 20100721
  4. LITHIUM CARBONATE [Concomitant]
     Indication: BIPOLAR I DISORDER
     Dosage: TAB
     Dates: start: 20100701, end: 20100101

REACTIONS (2)
  - DYSTONIA [None]
  - PNEUMONIA ASPIRATION [None]
